FAERS Safety Report 6750160-2 (Version None)
Quarter: 2010Q2

REPORT INFORMATION
  Report Type: 
  Country: None (occurrence: None)
  Receive Date: 20100601
  Receipt Date: 20100528
  Transmission Date: 20101027
  Serious: Yes (Hospitalization)
  Sender: FDA-Public Use
  Company Number: US-SP-2010-01765

PATIENT
  Age: 54 Year
  Sex: Male

DRUGS (1)
  1. THERACYS [Suspect]
     Indication: BLADDER CANCER
     Route: 043
     Dates: start: 20090101, end: 20100316

REACTIONS (4)
  - HEPATIC FAILURE [None]
  - INFLUENZA [None]
  - LUNG DISORDER [None]
  - RENAL FAILURE [None]
